FAERS Safety Report 12105648 (Version 1)
Quarter: 2016Q1

REPORT INFORMATION
  Report Type: Spontaneous
  Country: CA (occurrence: CA)
  Receive Date: 20160223
  Receipt Date: 20160223
  Transmission Date: 20160526
  Serious: Yes (Other)
  Sender: FDA-Public Use
  Company Number: CA-009507513-1602CAN008731

PATIENT
  Age: 84 Year
  Sex: Male
  Weight: 87 kg

DRUGS (13)
  1. HUMALOG [Concomitant]
     Active Substance: INSULIN LISPRO
     Dosage: APPROXIMATELY 30 UNITS, BREAKFAST
  2. FLOMAX [Concomitant]
     Active Substance: TAMSULOSIN HYDROCHLORIDE
     Dosage: 0.4 MG, BEDTIME
  3. LIPITOR [Concomitant]
     Active Substance: ATORVASTATIN CALCIUM
     Dosage: 40 MG, BEDTIME
  4. KEYTRUDA [Suspect]
     Active Substance: PEMBROLIZUMAB
     Indication: MESOTHELIOMA
     Dosage: 174 MG, Q3W
     Route: 042
     Dates: start: 201601
  5. PLAVIX [Concomitant]
     Active Substance: CLOPIDOGREL BISULFATE
     Dosage: 75 MG,  MORNING
  6. LIPITOR [Concomitant]
     Active Substance: ATORVASTATIN CALCIUM
     Dosage: 20 MG, BEDTIME
  7. LANTUS [Concomitant]
     Active Substance: INSULIN GLARGINE
     Dosage: APPROXIMATELY 45 UNITS, BEDTIME
  8. SYNTHROID [Concomitant]
     Active Substance: LEVOTHYROXINE SODIUM
     Dosage: 0.137 MG, MORNING
  9. HUMALOG [Concomitant]
     Active Substance: INSULIN LISPRO
     Dosage: APPROXIMATELY 30 UNITS, DINNERTIME
  10. ASPIRIN. [Concomitant]
     Active Substance: ASPIRIN
     Dosage: 80 MG, MORNING
  11. HUMALOG [Concomitant]
     Active Substance: INSULIN LISPRO
     Dosage: TBD DEPENDING ON GLUCOSE LEVELS
  12. DEXILANT [Concomitant]
     Active Substance: DEXLANSOPRAZOLE
     Dosage: 60 MG, MORNING
  13. HUMALOG [Concomitant]
     Active Substance: INSULIN LISPRO
     Dosage: APPROXIMATELY 30 UNITS, LUNCHTIME

REACTIONS (2)
  - Pulmonary oedema [Recovering/Resolving]
  - Product use issue [Unknown]

NARRATIVE: CASE EVENT DATE: 201601
